FAERS Safety Report 8840879 (Version 1)
Quarter: 2012Q4

REPORT INFORMATION
  Report Type: 
  Country: AU (occurrence: AU)
  Receive Date: 20121015
  Receipt Date: 20121015
  Transmission Date: 20130627
  Serious: Yes (Hospitalization, Other)
  Sender: FDA-Public Use
  Company Number: PHHY2012AU082920

PATIENT
  Age: 48 Year
  Sex: Male

DRUGS (4)
  1. CLOZARIL [Suspect]
     Indication: SCHIZOPHRENIA
     Dosage: 300 mg
     Route: 048
     Dates: start: 20010928
  2. LITHIUM CARBONATE [Concomitant]
     Indication: AFFECTIVE DISORDER
     Dosage: 450 mg, BID
  3. VALPROATE SODIUM [Concomitant]
     Indication: AFFECTIVE DISORDER
     Dosage: 1 g, BID
     Route: 048
  4. OXYCODONE [Concomitant]

REACTIONS (10)
  - Sepsis [Recovered/Resolved]
  - Pyrexia [Recovered/Resolved]
  - Intestinal obstruction [Recovering/Resolving]
  - Obstruction [Recovering/Resolving]
  - Depressed level of consciousness [Recovered/Resolved]
  - Stupor [Recovered/Resolved]
  - Respiratory depression [Recovered/Resolved]
  - Confusional state [Recovered/Resolved]
  - Sedation [Unknown]
  - Antipsychotic drug level increased [Unknown]
